FAERS Safety Report 18599305 (Version 1)
Quarter: 2020Q4

REPORT INFORMATION
  Report Type: Spontaneous
  Country: US (occurrence: US)
  Receive Date: 20201112
  Receipt Date: 20201112
  Transmission Date: 20210114
  Serious: Yes (Death)
  Sender: FDA-Public Use
  Company Number: None

PATIENT
  Age: 6 Decade
  Sex: Female

DRUGS (8)
  1. HYDROXYCHLOROQUINE [Suspect]
     Active Substance: HYDROXYCHLOROQUINE
     Indication: COVID-19
     Dates: start: 2020
  2. MEROPENEM. [Suspect]
     Active Substance: MEROPENEM
  3. ANAKINRA [Suspect]
     Active Substance: ANAKINRA
  4. HEPARIN [Suspect]
     Active Substance: HEPARIN SODIUM
  5. PIPERACILLIN AND TAZOBACTAM [Suspect]
     Active Substance: PIPERACILLIN SODIUM\TAZOBACTAM SODIUM
  6. METHYLPREDNISOLONE. [Suspect]
     Active Substance: METHYLPREDNISOLONE
     Route: 042
  7. VORICONAZOLE. [Suspect]
     Active Substance: VORICONAZOLE
  8. REMDESIVIR. [Suspect]
     Active Substance: REMDESIVIR
     Indication: COVID-19
     Dates: start: 2020

REACTIONS (12)
  - Intentional product use issue [None]
  - Klebsiella infection [None]
  - COVID-19 [None]
  - General physical health deterioration [None]
  - Acute respiratory distress syndrome [None]
  - Disease progression [None]
  - Complications of transplanted lung [None]
  - Nosocomial infection [None]
  - Multiple organ dysfunction syndrome [None]
  - Pathogen resistance [None]
  - Off label use [None]
  - Bronchopulmonary aspergillosis [None]
